FAERS Safety Report 6877345-9 (Version None)
Quarter: 2010Q3

REPORT INFORMATION
  Report Type: 
  Country: None (occurrence: None)
  Receive Date: 20100727
  Receipt Date: 20090922
  Transmission Date: 20110219
  Serious: No
  Sender: FDA-Public Use
  Company Number: US-ABBOTT-09P-163-0599164-00

PATIENT
  Sex: Female
  Weight: 89.892 kg

DRUGS (6)
  1. SYNTHROID [Suspect]
     Indication: HYPOTHYROIDISM
     Dates: start: 19930101
  2. SYNTHROID [Suspect]
  3. GROWTH HORMONE [Concomitant]
     Indication: HYPOTHALAMO-PITUITARY DISORDER
  4. CYTOMEL [Concomitant]
     Indication: PRODUCT USED FOR UNKNOWN INDICATION
  5. CORTISONE [Concomitant]
     Indication: THYROID DISORDER
  6. MOTRIN [Concomitant]
     Indication: PRODUCT USED FOR UNKNOWN INDICATION

REACTIONS (10)
  - BLOOD THYROID STIMULATING HORMONE INCREASED [None]
  - DIZZINESS [None]
  - DRUG LEVEL INCREASED [None]
  - FEELING OF BODY TEMPERATURE CHANGE [None]
  - INFLUENZA LIKE ILLNESS [None]
  - MUSCULAR WEAKNESS [None]
  - PALPITATIONS [None]
  - PARAESTHESIA [None]
  - SENSORY DISTURBANCE [None]
  - TINNITUS [None]
